FAERS Safety Report 11165376 (Version 1)
Quarter: 2015Q2

REPORT INFORMATION
  Report Type: Spontaneous
  Country: US (occurrence: None)
  Receive Date: 20150603
  Receipt Date: 20150603
  Transmission Date: 20150821
  Serious: Yes (Disabling)
  Sender: FDA-Public Use
  Company Number: None

PATIENT
  Age: 34 Year
  Sex: Female
  Weight: 81.65 kg

DRUGS (13)
  1. COLESTIPOL [Concomitant]
     Active Substance: COLESTIPOL
  2. DAYSEE (BIRTH CONTROL PILL) [Concomitant]
  3. EXTRA STRENGTH PROBIOTICS [Concomitant]
  4. LEVOFLOXACIN. [Suspect]
     Active Substance: LEVOFLOXACIN
     Indication: URINARY TRACT INFECTION
     Dosage: 1 PILL
     Route: 048
  5. GABAPENTIN. [Concomitant]
     Active Substance: GABAPENTIN
  6. CHLORDIAZEPOXIDE-CLIDINIUM [Concomitant]
  7. ONDANSETRON [Concomitant]
     Active Substance: ONDANSETRON
  8. FLINSTONE VITAMINES [Concomitant]
  9. BACLOFEN. [Concomitant]
     Active Substance: BACLOFEN
  10. ALPRAZOLAM. [Concomitant]
     Active Substance: ALPRAZOLAM
  11. OMEPRAZOLE. [Concomitant]
     Active Substance: OMEPRAZOLE
  12. HYDROCODON [Concomitant]
     Active Substance: HYDROCODONE
  13. YOUNG LIVING ESSENTIAL OILS (DIFFUSED OR USED TOPICALLY, NEVER INJESTED) [Concomitant]

REACTIONS (15)
  - Myalgia [None]
  - Bedridden [None]
  - Diarrhoea [None]
  - Gastrointestinal pain [None]
  - Confusional state [None]
  - Quality of life decreased [None]
  - Abdominal pain upper [None]
  - Vision blurred [None]
  - Fatigue [None]
  - Vomiting [None]
  - Irritable bowel syndrome [None]
  - Cholecystitis [None]
  - Neuralgia [None]
  - Somnolence [None]
  - Weight decreased [None]

NARRATIVE: CASE EVENT DATE: 20140130
